FAERS Safety Report 16706337 (Version 3)
Quarter: 2020Q1

REPORT INFORMATION
  Report Type: Spontaneous
  Country: FR (occurrence: FR)
  Receive Date: 20190815
  Receipt Date: 20200213
  Transmission Date: 20200409
  Serious: Yes (Other)
  Sender: FDA-Public Use
  Company Number: FR-PFIZER INC-2019344337

PATIENT
  Age: 5 Year
  Sex: Male
  Weight: 22 kg

DRUGS (3)
  1. VFEND [Suspect]
     Active Substance: VORICONAZOLE
     Indication: PROPHYLAXIS
     Dosage: 400 MG, 1X/DAY
     Route: 048
     Dates: start: 20190607, end: 20190620
  2. NEORAL [Interacting]
     Active Substance: CYCLOSPORINE
     Indication: BONE MARROW FAILURE
     Dosage: 1.5 MG, 1X/DAY
     Route: 048
     Dates: start: 20190312
  3. REVOLADE [Interacting]
     Active Substance: ELTROMBOPAG
     Dosage: 25 MG, 1X/DAY
     Route: 048
     Dates: start: 20190608, end: 20190720

REACTIONS (3)
  - Drug interaction [Recovered/Resolved]
  - Hyperbilirubinaemia [Recovered/Resolved]
  - Cholestasis [Recovered/Resolved]

NARRATIVE: CASE EVENT DATE: 2019
